FAERS Safety Report 8407449 (Version 3)
Quarter: 2012Q4

REPORT INFORMATION
  Report Type: 
  Country: US (occurrence: US)
  Receive Date: 20120215
  Receipt Date: 20121127
  Transmission Date: 20130627
  Serious: Yes (Hospitalization)
  Sender: FDA-Public Use
  Company Number: PHHO2011US019420

PATIENT
  Sex: Female
  Weight: 56.6 kg

DRUGS (3)
  1. CLONIDINE HYDROCHLORIDE [Suspect]
     Indication: HYPERTENSION
     Dosage: UNK
  2. BEZ-235 [Suspect]
     Indication: NEOPLASM MALIGNANT
     Dosage: 1200 mg, QD
     Dates: start: 20110525, end: 20120227
  3. NORVASC [Suspect]

REACTIONS (1)
  - Urosepsis [Unknown]
